FAERS Safety Report 14874649 (Version 1)
Quarter: 2018Q2

REPORT INFORMATION
  Report Type: Spontaneous
  Country: US (occurrence: US)
  Receive Date: 20180510
  Receipt Date: 20180510
  Transmission Date: 20180711
  Serious: No
  Sender: FDA-Public Use
  Company Number: US-LEXICON PHARMACEUTICALS, INC-18-1606-00523

PATIENT
  Age: 61 Year
  Sex: Male

DRUGS (18)
  1. FIBER [Concomitant]
     Active Substance: PSYLLIUM HUSK
  2. BELLADONNA-OPIUM [Concomitant]
  3. CREON [Concomitant]
     Active Substance: PANCRELIPASE AMYLASE\PANCRELIPASE LIPASE\PANCRELIPASE PROTEASE
  4. QUESTRAN [Concomitant]
     Active Substance: CHOLESTYRAMINE
  5. MEGACE ORAL SUS [Concomitant]
  6. ROXICODONE [Concomitant]
     Active Substance: OXYCODONE HYDROCHLORIDE
  7. ZOFRAN [Concomitant]
     Active Substance: ONDANSETRON HYDROCHLORIDE
  8. MULTIVITAMIN [Concomitant]
     Active Substance: VITAMINS
  9. OMEGA3 [Concomitant]
  10. SIMETHICONE (DIMETHICONE) [Concomitant]
     Active Substance: DIMETHICONE
  11. TYLENOL [Concomitant]
     Active Substance: ACETAMINOPHEN
  12. K-PHOS [Concomitant]
     Active Substance: POTASSIUM PHOSPHATE, MONOBASIC
  13. SANDOSTATIN [Concomitant]
     Active Substance: OCTREOTIDE ACETATE
  14. MELATONIN [Concomitant]
     Active Substance: MELATONIN
  15. METAMUCIL [Concomitant]
     Active Substance: PLANTAGO SEED
  16. TELOTRISTAT ETHYL [Suspect]
     Active Substance: TELOTRISTAT ETHYL
     Indication: CARCINOID TUMOUR
     Route: 048
     Dates: start: 20170422
  17. DIPHENOXYLATE-ATROPINE [Concomitant]
     Active Substance: ATROPINE\DIPHENOXYLATE
  18. LOPERAMIDE [Concomitant]
     Active Substance: LOPERAMIDE

REACTIONS (3)
  - Blood magnesium decreased [Unknown]
  - Lymph nodes scan abnormal [Unknown]
  - Nausea [Unknown]

NARRATIVE: CASE EVENT DATE: 201804
